FAERS Safety Report 16449875 (Version 2)
Quarter: 2019Q3

REPORT INFORMATION
  Report Type: Spontaneous
  Country: US (occurrence: US)
  Receive Date: 20190619
  Receipt Date: 20190701
  Transmission Date: 20191004
  Serious: Yes (Life-Threatening, Hospitalization, Other)
  Sender: FDA-Public Use
  Company Number: US-DRREDDYS-USA/USA/19/0111094

PATIENT
  Age: 24 Year
  Sex: Male

DRUGS (1)
  1. METOPROLOL SUCCINATE. [Suspect]
     Active Substance: METOPROLOL SUCCINATE
     Indication: HYPERTENSION
     Dosage: 1 EXTRA TABLET

REACTIONS (7)
  - Hypotension [Recovered/Resolved]
  - Hyperkalaemia [Unknown]
  - Toxicity to various agents [Unknown]
  - Condition aggravated [Unknown]
  - Renal failure [Unknown]
  - Bradycardia [Recovered/Resolved]
  - Mental disorder [Unknown]
